FAERS Safety Report 4773586-5 (Version None)
Quarter: 2005Q3

REPORT INFORMATION
  Report Type: 
  Country: None (occurrence: None)
  Receive Date: 20050920
  Receipt Date: 20050831
  Transmission Date: 20060218
  Serious: No
  Sender: FDA-Public Use
  Company Number: US-BRISTOL-MYERS SQUIBB COMPANY-13096482

PATIENT
  Sex: Female
  Weight: 69 kg

DRUGS (1)
  1. BUSPAR [Suspect]
     Dosage: 10 MG AM, 5 MG PM
     Route: 048

REACTIONS (3)
  - COLD SWEAT [None]
  - LETHARGY [None]
  - NERVOUSNESS [None]
